FAERS Safety Report 18809116 (Version 1)
Quarter: 2021Q1

REPORT INFORMATION
  Report Type: Spontaneous
  Country: NL (occurrence: NL)
  Receive Date: 20210129
  Receipt Date: 20210129
  Transmission Date: 20210419
  Serious: Yes (Disabling)
  Sender: FDA-Public Use
  Company Number: NL-TEVA-2021-NL-1873148

PATIENT
  Age: 61 Year
  Sex: Female
  Weight: 80 kg

DRUGS (9)
  1. EZETIMIB/SIMVASTATINE TABLET 10/40MG / BRAND NAME NOT SPECIFIED [Suspect]
     Active Substance: EZETIMIBE\SIMVASTATIN
     Indication: CARDIAC DISORDER
     Dosage: IN THE EVENING 10MG / 40MG TABLETS GIGANTIC PAINS,:UNIT DOSE:1DOSAGEFORM
     Dates: start: 2010, end: 20200520
  2. TIOTROPIUM INHALATIECAPSULE 18UG / SPIRIVA INHALPDR 18MCG [Concomitant]
     Dosage: THERAPY START DATE:ASKED BUT UNKNOWN?THERAPY END DATE :ASKED BUT UNKNOWN
  3. EPLERENON TABLET 25MG / BRAND NAME NOT SPECIFIED [Concomitant]
     Dosage: IV 5MG / BISO 10MG PERIN 2MG ACETYL 80MG EPL 25MG OMPR 20MG
  4. IVABRADINE TABLET 5MG / PROCORALAN TABLET FILMOMHULD 5MG [Concomitant]
     Dosage: IV 5MG / BISO 10MG PERIN 2MG ACETYL 80MG EPL 25MG OMPR 20MG:THERAPY START DATE:ASKED BUT UNKNOWN:THE
  5. PERINDOPRIL TABLET 2MG (ERBUMINE) / BRAND NAME NOT SPECIFIED [Concomitant]
     Dosage: IV 5MG / BISO 10MG PERIN 2MG ACETYL 80MG EPL 25MG OMPR 20MG:THERAPY START DATE:ASKED BUT UNKNOWNTHER
  6. ACETYLSALICYLZUUR / BRAND NAME NOT SPECIFIED [Concomitant]
     Dosage: IV 5MG / BISO 10MG PERIN 2MG ACETYL 80MG EPL 25MG OMPR 20MG:THERAPY START DATE:ASKED BUT UNKNOWN:THE
  7. OMEPRAZOL / BRAND NAME NOT SPECIFIED [Concomitant]
     Dosage: IV 5MG / BISO 10MG PERIN 2MG ACETYL 80MG EPL 25MG OMPR 20MG:THERAPY START DATE:ASKED BUT UNKNOWN?THE
  8. BISOPROLOL FUMARAAT / BRAND NAME NOT SPECIFIED [Concomitant]
     Active Substance: BISOPROLOL FUMARATE
     Dosage: IV 5MG / BISO 10MG PERIN 2MG ACETYL 80MG EPL 25MG OMPR 20MG:THERAPY START DATE:ASKED BUT UNKNOWNTHER
  9. BECLOMETASON/FORMOTEROL INHALATIEPOEDER 100/6UG/DO / FOSTER NEXTHALER [Concomitant]
     Dosage: THERAPY START DATE:ASKED BUT UNKNOWNTHERAPY END DATE :ASKED BUT UNKNOWN

REACTIONS (8)
  - Crying [Not Recovered/Not Resolved]
  - Back pain [Not Recovered/Not Resolved]
  - Asthenia [Not Recovered/Not Resolved]
  - Abdominal pain [Not Recovered/Not Resolved]
  - Depressed mood [Not Recovered/Not Resolved]
  - Neck pain [Not Recovered/Not Resolved]
  - Disturbance in attention [Not Recovered/Not Resolved]
  - Therapeutic response unexpected [Unknown]

NARRATIVE: CASE EVENT DATE: 20200520
